FAERS Safety Report 14568162 (Version 1)
Quarter: 2018Q1

REPORT INFORMATION
  Report Type: Spontaneous
  Country: US (occurrence: US)
  Receive Date: 20180223
  Receipt Date: 20180223
  Transmission Date: 20180509
  Serious: Yes (Other)
  Sender: FDA-Public Use
  Company Number: US-BRISTOL-MYERS SQUIBB COMPANY-BMS-2018-015640

PATIENT
  Age: 78 Year
  Sex: Male
  Weight: 81.63 kg

DRUGS (1)
  1. ELIQUIS [Suspect]
     Active Substance: APIXABAN
     Indication: CEREBROVASCULAR ACCIDENT PROPHYLAXIS
     Dosage: 5 MG, BID
     Route: 048
     Dates: start: 201703, end: 20180104

REACTIONS (3)
  - Epistaxis [Recovered/Resolved]
  - Eye haemorrhage [Not Recovered/Not Resolved]
  - Cardiac flutter [Unknown]

NARRATIVE: CASE EVENT DATE: 201712
